FAERS Safety Report 20681911 (Version 1)
Quarter: 2022Q2

REPORT INFORMATION
  Report Type: Spontaneous
  Country: FR (occurrence: FR)
  Receive Date: 20220407
  Receipt Date: 20220407
  Transmission Date: 20220721
  Serious: Yes (Congenital Anomaly)
  Sender: FDA-Public Use
  Company Number: FR-ABBVIE-22K-056-4349229-00

PATIENT
  Sex: Male

DRUGS (1)
  1. VALPROATE SODIUM [Suspect]
     Active Substance: VALPROATE SODIUM
     Indication: Maternal exposure timing unspecified
     Route: 064

REACTIONS (6)
  - Developmental delay [Unknown]
  - Anxiety [Unknown]
  - Anger [Unknown]
  - Emotional distress [Unknown]
  - Surgery [Unknown]
  - Foetal exposure during pregnancy [Unknown]
